FAERS Safety Report 16790983 (Version 6)
Quarter: 2019Q4

REPORT INFORMATION
  Report Type: Spontaneous
  Country: US (occurrence: US)
  Receive Date: 20190910
  Receipt Date: 20191205
  Transmission Date: 20200122
  Serious: Yes (Disabling, Other)
  Sender: FDA-Public Use
  Company Number: US-PFIZER INC-2019382969

PATIENT
  Age: 54 Year
  Sex: Male

DRUGS (2)
  1. ZITHROMAX [Suspect]
     Active Substance: AZITHROMYCIN DIHYDRATE
     Dosage: UNK
  2. AZITHROMYCIN ANHYDROUS. [Suspect]
     Active Substance: AZITHROMYCIN ANHYDROUS
     Dosage: UNK

REACTIONS (6)
  - Agraphia [Unknown]
  - Brain injury [Unknown]
  - Memory impairment [Unknown]
  - Condition aggravated [Unknown]
  - Cerebrovascular accident [Unknown]
  - Cerebral disorder [Unknown]

NARRATIVE: CASE EVENT DATE: 201402
